FAERS Safety Report 9023401 (Version 6)
Quarter: 2013Q2

REPORT INFORMATION
  Report Type: Report from Study
  Country: US (occurrence: US)
  Receive Date: 20130121
  Receipt Date: 20130508
  Transmission Date: 20140414
  Serious: Yes (Other)
  Sender: FDA-Public Use
  Company Number: US-JNJFOC-20130106104

PATIENT
  Sex: Female
  Weight: 102.06 kg

DRUGS (12)
  1. REMICADE [Suspect]
     Indication: RHEUMATOID ARTHRITIS
     Route: 042
     Dates: start: 201211, end: 2012
  2. METHOTREXATE [Concomitant]
     Indication: ARTHRITIS
     Route: 065
  3. CITALOPRAM HBR [Concomitant]
     Indication: DEPRESSION
     Route: 065
  4. DILTIAZEM ER [Concomitant]
     Indication: HYPERTENSION
     Route: 065
  5. FUROSEMIDE [Concomitant]
     Indication: SWELLING
     Route: 065
  6. ATENOLOL [Concomitant]
     Indication: HYPERTENSION
     Route: 065
  7. SIMVASTATINE [Concomitant]
     Indication: BLOOD CHOLESTEROL
     Route: 065
  8. LEVOTHYROXINE [Concomitant]
     Indication: HYPOTHYROIDISM
     Route: 065
  9. OMEPRAZOLE [Concomitant]
     Indication: DYSPEPSIA
     Route: 065
  10. POTASSIUM CHLORIDE [Concomitant]
     Indication: DYSPEPSIA
     Route: 065
  11. CENTRUM NOS [Concomitant]
     Indication: NUTRITIONAL SUPPLEMENTATION
     Route: 065
  12. FOLIC ACID [Concomitant]
     Indication: NUTRITIONAL SUPPLEMENTATION
     Route: 065

REACTIONS (1)
  - Chronic obstructive pulmonary disease [Recovered/Resolved]
